FAERS Safety Report 5088413-9 (Version None)
Quarter: 2006Q3

REPORT INFORMATION
  Report Type: 
  Country: None (occurrence: None)
  Receive Date: 20060821
  Receipt Date: 20060811
  Transmission Date: 20061208
  Serious: Yes (Hospitalization)
  Sender: FDA-Public Use
  Company Number: 228647

PATIENT
  Age: 83 Year
  Sex: Male

DRUGS (6)
  1. XOLAIR [Suspect]
     Indication: ASTHMA
     Dosage: 450 MG, Q2W, SUBCUTANEOUS
     Route: 058
     Dates: start: 20060619
  2. FUROSEMIDE [Concomitant]
  3. TERAZOSIN HCL [Concomitant]
  4. SINGULAIR [Concomitant]
  5. FLONASE [Concomitant]
  6. ADVAIR DISKUS 100/50 [Concomitant]

REACTIONS (1)
  - CEREBROVASCULAR ACCIDENT [None]
